FAERS Safety Report 10438904 (Version 1)
Quarter: 2014Q3

REPORT INFORMATION
  Report Type: Spontaneous
  Country: JP (occurrence: JP)
  Receive Date: 20140908
  Receipt Date: 20140908
  Transmission Date: 20150326
  Serious: No
  Sender: FDA-Public Use
  Company Number: PHHY2013JP162417

PATIENT
  Age: 80 Year
  Sex: Male

DRUGS (4)
  1. TASIGNA [Suspect]
     Active Substance: NILOTINIB
     Indication: CHRONIC MYELOID LEUKAEMIA
     Dosage: 800 MG, DAILY
  2. DASATINIB [Concomitant]
     Active Substance: DASATINIB
     Dosage: 50 MG, UNK
  3. DASATINIB [Concomitant]
     Active Substance: DASATINIB
     Indication: PLATELET COUNT INCREASED
     Dosage: 100 MG, UNK
  4. INTERFERON NOS [Concomitant]
     Active Substance: INTERFERON

REACTIONS (2)
  - Platelet count decreased [Unknown]
  - White blood cell count decreased [Unknown]
